FAERS Safety Report 7949019-4 (Version None)
Quarter: 2011Q4

REPORT INFORMATION
  Report Type: 
  Country: None (occurrence: None)
  Receive Date: 20111123
  Receipt Date: 20111123
  Transmission Date: 20120403
  Serious: No
  Sender: FDA-Public Use
  Company Number: None

PATIENT
  Sex: Female

DRUGS (2)
  1. ESTRADIOL [Suspect]
     Indication: MENOPAUSE
     Dosage: 0.05% 1 PATCH/WK TRANSDERMAL
     Route: 062
  2. ESTRADIOL [Suspect]
     Indication: HOT FLUSH
     Dosage: 0.05% 1 PATCH/WK TRANSDERMAL
     Route: 062

REACTIONS (2)
  - APPLICATION SITE RASH [None]
  - PRODUCT SUBSTITUTION ISSUE [None]
